FAERS Safety Report 14107114 (Version 1)
Quarter: 2017Q4

REPORT INFORMATION
  Report Type: Report from Study
  Country: None (occurrence: US)
  Receive Date: 20171018
  Receipt Date: 20171018
  Transmission Date: 20180321
  Serious: Yes (Hospitalization)
  Sender: FDA-Public Use
  Company Number: US-BIOGEN-2017BV000349

PATIENT
  Age: 16 Month
  Sex: Male
  Weight: 12.9 kg

DRUGS (15)
  1. RFIXFC [Suspect]
     Active Substance: EFTRENONACOG ALFA
     Route: 042
     Dates: start: 20170823
  2. RFIXFC [Suspect]
     Active Substance: EFTRENONACOG ALFA
     Dosage: RECEIVED 30 MINUTES PRIOR TO PORT PLACEMENT
     Route: 042
     Dates: start: 20170818
  3. RFIXFC [Suspect]
     Active Substance: EFTRENONACOG ALFA
     Route: 042
     Dates: start: 20170927
  4. RFIXFC [Suspect]
     Active Substance: EFTRENONACOG ALFA
     Indication: FACTOR IX DEFICIENCY
     Dosage: BASELINE DOSE
     Route: 042
     Dates: start: 20170712
  5. VERSED [Concomitant]
     Active Substance: MIDAZOLAM HYDROCHLORIDE
     Indication: PRODUCT USED FOR UNKNOWN INDICATION
     Dosage: 10 MG/5ML (2MG-ML)ONE TIME; PRIOR TO IV ACCESS
     Route: 048
  6. RFIXFC [Suspect]
     Active Substance: EFTRENONACOG ALFA
     Route: 042
  7. POLYETHYLENE GLYCOL [Concomitant]
     Active Substance: POLYETHYLENE GLYCOLS
     Indication: CONSTIPATION
     Route: 048
     Dates: start: 20170929
  8. RFIXFC [Suspect]
     Active Substance: EFTRENONACOG ALFA
     Route: 042
     Dates: start: 20170819
  9. RFIXFC [Suspect]
     Active Substance: EFTRENONACOG ALFA
     Route: 042
     Dates: start: 20170822
  10. RFIXFC [Suspect]
     Active Substance: EFTRENONACOG ALFA
     Dosage: ONCE
     Route: 042
  11. RFIXFC [Suspect]
     Active Substance: EFTRENONACOG ALFA
     Dosage: COMMERCIAL ALPROLIX
     Route: 065
     Dates: start: 20170626
  12. BACLOPHEN [Concomitant]
     Indication: PYREXIA
     Dosage: AS NEEDED
     Route: 048
     Dates: start: 20170929
  13. MIRALAX [Concomitant]
     Active Substance: POLYETHYLENE GLYCOL 3350
     Indication: CONSTIPATION
     Route: 048
  14. LIDOCAINE. [Concomitant]
     Active Substance: LIDOCAINE
     Indication: CENTRAL VENOUS CATHETERISATION
     Dosage: 4% CREAM (L-M-X4)
     Route: 061
     Dates: start: 20170909
  15. RFIXFC [Suspect]
     Active Substance: EFTRENONACOG ALFA
     Route: 042
     Dates: start: 20170820

REACTIONS (1)
  - Infusion site pustule [Recovered/Resolved]

NARRATIVE: CASE EVENT DATE: 20171004
